FAERS Safety Report 8163652-9 (Version None)
Quarter: 2012Q1

REPORT INFORMATION
  Report Type: 
  Country: None (occurrence: None)
  Receive Date: 20120221
  Receipt Date: 20120209
  Transmission Date: 20120608
  Serious: Yes (Other)
  Sender: FDA-Public Use
  Company Number: DSA_55102_2012

PATIENT
  Age: 69 Year
  Sex: Female

DRUGS (8)
  1. LORAZEPAM [Concomitant]
  2. BUPROPION HYDROCHLORIDE [Suspect]
     Indication: DEPRESSION
     Dosage: (300 MG QD ORAL), (150 MG QD ORAL)
     Route: 048
     Dates: start: 20120118, end: 20120125
  3. BUPROPION HYDROCHLORIDE [Suspect]
     Indication: DEPRESSION
     Dosage: (300 MG QD ORAL), (150 MG QD ORAL)
     Route: 048
     Dates: start: 20120125, end: 20120209
  4. MIRTAZAPINE [Concomitant]
  5. CYANOCOBALAMIN [Concomitant]
  6. VENLAFAXINE [Concomitant]
  7. RISPERDAL [Concomitant]
  8. DISTRANEURINE /00027502/ [Concomitant]

REACTIONS (3)
  - HYPERSENSITIVITY [None]
  - VASCULITIS [None]
  - RASH [None]
